FAERS Safety Report 4847122-9 (Version None)
Quarter: 2005Q4

REPORT INFORMATION
  Report Type: 
  Country: None (occurrence: None)
  Receive Date: 20051205
  Receipt Date: 20051205
  Transmission Date: 20060501
  Serious: No
  Sender: FDA-Public Use
  Company Number: None

PATIENT
  Age: 38 Year
  Sex: Female
  Weight: 78.9259 kg

DRUGS (2)
  1. OXYCONTIN [Suspect]
     Indication: BACK PAIN
     Dosage: 40 MG 2 TABS Q 8 H
     Dates: start: 20050907, end: 20051103
  2. OXYCONTIN [Suspect]
     Indication: PAIN IN EXTREMITY
     Dosage: 40 MG 2 TABS Q 8 H
     Dates: start: 20050907, end: 20051103

REACTIONS (3)
  - INFLUENZA LIKE ILLNESS [None]
  - NAUSEA [None]
  - THERAPEUTIC RESPONSE UNEXPECTED WITH DRUG SUBSTITUTION [None]
